FAERS Safety Report 15562625 (Version 1)
Quarter: 2018Q4

REPORT INFORMATION
  Report Type: Spontaneous
  Country: GB (occurrence: PL)
  Receive Date: 20181029
  Receipt Date: 20181029
  Transmission Date: 20190205
  Serious: Yes (Other)
  Sender: FDA-Public Use
  Company Number: PL-FRESENIUS KABI-FK201811000

PATIENT
  Sex: Male

DRUGS (6)
  1. OXALIPLATIN (MANUFACTURER UNKNOWN) [Suspect]
     Active Substance: OXALIPLATIN
     Indication: COLORECTAL CANCER
     Route: 065
  2. BEVACIZUMAB. [Suspect]
     Active Substance: BEVACIZUMAB
     Indication: COLORECTAL CANCER
     Route: 065
     Dates: start: 20141201, end: 20150601
  3. CAPECITABINE. [Suspect]
     Active Substance: CAPECITABINE
     Indication: COLORECTAL CANCER
     Route: 065
     Dates: start: 20180709
  4. FLUOROURACIL. [Suspect]
     Active Substance: FLUOROURACIL
     Indication: COLORECTAL CANCER
     Route: 065
  5. IRINOTECAN [Concomitant]
     Active Substance: IRINOTECAN
     Indication: COLORECTAL CANCER
     Route: 065
  6. FOLINIC ACID [Suspect]
     Active Substance: LEUCOVORIN
     Indication: COLORECTAL CANCER
     Route: 065

REACTIONS (13)
  - Hypersensitivity [Unknown]
  - Glomerular filtration rate decreased [Unknown]
  - Skin toxicity [Unknown]
  - General physical health deterioration [Unknown]
  - Neuropathy peripheral [Unknown]
  - Drug hypersensitivity [Unknown]
  - Blood creatinine increased [Unknown]
  - Anuria [Unknown]
  - Peritoneal disorder [Unknown]
  - Thrombocytopenia [Unknown]
  - Tremor [Unknown]
  - Abdominal pain [Unknown]
  - Haematotoxicity [Recovered/Resolved]
